FAERS Safety Report 9185373 (Version 2)
Quarter: 2013Q2

REPORT INFORMATION
  Report Type: Spontaneous
  Country: TR (occurrence: None)
  Receive Date: 20130321
  Receipt Date: 20130621
  Transmission Date: 20140414
  Serious: Yes (Other)
  Sender: FDA-Public Use
  Company Number: 1640092

PATIENT
  Age: 51 Year
  Sex: Female

DRUGS (2)
  1. (CARBOPLATIN) [Suspect]
     Indication: OVARIAN CANCER
     Dosage: CYCLICAL
  2. PACLITAXEL [Suspect]
     Indication: OVARIAN CANCER
     Dosage: CYCLICAL

REACTIONS (5)
  - Dialysis [None]
  - Metastases to lung [None]
  - Second primary malignancy [None]
  - Squamous cell carcinoma of the vagina [None]
  - Renal failure chronic [None]
